FAERS Safety Report 16191141 (Version 2)
Quarter: 2019Q2

REPORT INFORMATION
  Report Type: Spontaneous
  Country: US (occurrence: US)
  Receive Date: 20190412
  Receipt Date: 20190523
  Transmission Date: 20190711
  Serious: No
  Sender: FDA-Public Use
  Company Number: US-ASTRAZENECA-2019SE43820

PATIENT
  Sex: Male

DRUGS (1)
  1. SYMBICORT [Suspect]
     Active Substance: BUDESONIDE\FORMOTEROL FUMARATE DIHYDRATE
     Indication: ASTHMA
     Dosage: 160/4.5 MCG, TWO INHALATIONS TWO TIMES A DAY
     Route: 055
     Dates: start: 201609

REACTIONS (3)
  - Confusional state [Not Recovered/Not Resolved]
  - Communication disorder [Not Recovered/Not Resolved]
  - Device malfunction [Unknown]
